FAERS Safety Report 5276146-5 (Version None)
Quarter: 2007Q1

REPORT INFORMATION
  Report Type: 
  Country: None (occurrence: None)
  Receive Date: 20070326
  Receipt Date: 20070111
  Transmission Date: 20070707
  Serious: Yes (Life-Threatening, Hospitalization)
  Sender: FDA-Public Use
  Company Number: US-JNJFOC-20061001441

PATIENT
  Sex: Male
  Weight: 79.83 kg

DRUGS (11)
  1. TMC114 [Suspect]
     Route: 048
  2. TMC114 [Suspect]
     Indication: HIV INFECTION
     Route: 048
  3. RITONAVIR [Suspect]
     Indication: HIV INFECTION
     Route: 048
  4. CRYSTAL METH [Interacting]
     Indication: DRUG USE FOR UNKNOWN INDICATION
     Route: 048
  5. GHB [Interacting]
     Indication: DRUG USE FOR UNKNOWN INDICATION
     Route: 048
  6. TRUVADA [Concomitant]
     Indication: HIV INFECTION
     Route: 048
  7. EXCEDRIN (MIGRAINE) [Concomitant]
     Indication: HEADACHE
     Route: 048
  8. IBUPROFEN [Concomitant]
     Indication: JOINT SWELLING
     Route: 048
  9. BACTRIM DS [Concomitant]
     Indication: ANTIFUNGAL PROPHYLAXIS
     Route: 048
  10. TESTOSTERONE CIPIONATE [Concomitant]
     Indication: FATIGUE
     Route: 030
  11. LAMSIL [Concomitant]
     Indication: ONYCHOMYCOSIS
     Route: 048

REACTIONS (4)
  - ARRHYTHMIA [None]
  - DRUG INTERACTION [None]
  - ELECTROCARDIOGRAM QT PROLONGED [None]
  - MULTIPLE DRUG OVERDOSE [None]
